FAERS Safety Report 7991912-0 (Version None)
Quarter: 2011Q4

REPORT INFORMATION
  Report Type: 
  Country: None (occurrence: None)
  Receive Date: 20111219
  Receipt Date: 20111214
  Transmission Date: 20120403
  Serious: No
  Sender: FDA-Public Use
  Company Number: US-PFIZER INC-2011304839

PATIENT
  Sex: Male

DRUGS (2)
  1. KEPPRA [Concomitant]
     Dosage: UNK
  2. LYRICA [Suspect]
     Indication: COMPLEX PARTIAL SEIZURES
     Dosage: 200 MG, 2X/DAY
     Route: 048
     Dates: start: 20090101, end: 20111212

REACTIONS (4)
  - SEMEN ANALYSIS ABNORMAL [None]
  - DRUG INEFFECTIVE [None]
  - SEMEN VOLUME DECREASED [None]
  - LIBIDO DECREASED [None]
